FAERS Safety Report 4634761-3 (Version None)
Quarter: 2005Q2

REPORT INFORMATION
  Report Type: 
  Country: None (occurrence: None)
  Receive Date: 20050412
  Receipt Date: 20050401
  Transmission Date: 20051028
  Serious: Yes (Other)
  Sender: FDA-Public Use
  Company Number: 163-20785-04100137

PATIENT
  Sex: Male

DRUGS (4)
  1. THALIDOMIDE\PLACEBO (THALIDOMIDE) (CAPSULES) [Suspect]
     Indication: PROSTATIC INTRAEPITHELIAL NEOPLASIA
     Dosage: 200 MG OR PLACEBO, DAILY, ORAL
     Route: 048
     Dates: start: 20020311
  2. THALIDOMIDE\PLACEBO (THALIDOMIDE) (CAPSULES) [Suspect]
     Indication: PROSTATIC INTRAEPITHELIAL NEOPLASIA
     Dosage: 200 MG OR PLACEBO, DAILY, ORAL
     Route: 048
     Dates: start: 20030106
  3. LEUPROLIDE (L) OR GOSERELIN (G) [Suspect]
     Indication: PROSTATIC INTRAEPITHELIAL NEOPLASIA
     Dosage: SEE IMAGE
     Dates: start: 20020311
  4. LEUPROLIDE (L) OR GOSERELIN (G) [Suspect]
     Indication: PROSTATIC INTRAEPITHELIAL NEOPLASIA
     Dosage: SEE IMAGE
     Dates: start: 20030106

REACTIONS (20)
  - ALANINE AMINOTRANSFERASE ABNORMAL [None]
  - ASPARTATE AMINOTRANSFERASE ABNORMAL [None]
  - ASTHENIA [None]
  - CHEST DISCOMFORT [None]
  - CONSTIPATION [None]
  - DEPRESSED LEVEL OF CONSCIOUSNESS [None]
  - DISEASE PROGRESSION [None]
  - DIZZINESS [None]
  - DRY MOUTH [None]
  - FATIGUE [None]
  - HEADACHE [None]
  - HOT FLUSH [None]
  - HYPERGLYCAEMIA [None]
  - INCONTINENCE [None]
  - LETHARGY [None]
  - MALAISE [None]
  - PAIN [None]
  - PERIPHERAL SENSORY NEUROPATHY [None]
  - RASH [None]
  - SKIN EXFOLIATION [None]
